FAERS Safety Report 6671165-6 (Version None)
Quarter: 2010Q2

REPORT INFORMATION
  Report Type: 
  Country: None (occurrence: None)
  Receive Date: 20100406
  Receipt Date: 20100406
  Transmission Date: 20101027
  Serious: No
  Sender: FDA-Public Use
  Company Number: None

PATIENT
  Sex: Male
  Weight: 83.4619 kg

DRUGS (2)
  1. SPIRIVA [Suspect]
     Indication: CHRONIC OBSTRUCTIVE PULMONARY DISEASE
     Dosage: ONE CAPSULE ONCE DAILY (PROBLEM LAST TWO MONTHS)
  2. SPIRIVA [Suspect]
     Indication: EMPHYSEMA
     Dosage: ONE CAPSULE ONCE DAILY (PROBLEM LAST TWO MONTHS)

REACTIONS (2)
  - CAPSULE ISSUE [None]
  - PRODUCT QUALITY ISSUE [None]
